FAERS Safety Report 14918410 (Version 2)
Quarter: 2018Q2

REPORT INFORMATION
  Report Type: Spontaneous
  Country: GB (occurrence: GB)
  Receive Date: 20180521
  Receipt Date: 20180628
  Transmission Date: 20180711
  Serious: Yes (Hospitalization)
  Sender: FDA-Public Use
  Company Number: GB-AUROBINDO-AUR-APL-2018-026897

PATIENT
  Sex: Female
  Weight: 2 kg

DRUGS (16)
  1. AMOXICILLIN. [Concomitant]
     Active Substance: AMOXICILLIN
     Indication: LOWER RESPIRATORY TRACT INFECTION
     Dosage: UNK ()
     Route: 064
     Dates: start: 201711, end: 20180412
  2. AMOXICILLIN. [Concomitant]
     Active Substance: AMOXICILLIN
     Dosage: UNK ()
     Route: 063
     Dates: start: 20180412, end: 20180522
  3. DEXAMETHASONE. [Concomitant]
     Active Substance: DEXAMETHASONE
     Dosage: UNK ()
     Route: 063
     Dates: start: 20180412, end: 20180522
  4. NIFEDIPINE. [Concomitant]
     Active Substance: NIFEDIPINE
     Indication: PRE-ECLAMPSIA
     Dosage: UNK ()
     Route: 064
     Dates: start: 20180409, end: 20180412
  5. METFORMIN [Suspect]
     Active Substance: METFORMIN HYDROCHLORIDE
     Indication: TYPE 1 DIABETES MELLITUS
     Dosage: 500 MG, QD
     Route: 064
     Dates: start: 201709, end: 20180412
  6. ASPIRIN                            /00002701/ [Concomitant]
     Active Substance: ASPIRIN
     Indication: PROPHYLAXIS
     Dosage: UNK ()
     Route: 064
     Dates: start: 20171108, end: 20180412
  7. NOVORAPID [Suspect]
     Active Substance: INSULIN ASPART
     Dosage: 1.0 UNK ()
     Route: 063
     Dates: start: 20180412, end: 20180522
  8. METFORMIN [Suspect]
     Active Substance: METFORMIN HYDROCHLORIDE
     Dosage: 500 MG, QD
     Route: 063
     Dates: start: 20180412, end: 20180522
  9. FOLIC ACID. [Concomitant]
     Active Substance: FOLIC ACID
     Indication: PROPHYLAXIS
     Dosage: UNK ()
     Route: 064
     Dates: start: 201709, end: 20180412
  10. NIFEDIPINE. [Concomitant]
     Active Substance: NIFEDIPINE
     Dosage: UNK ()
     Route: 063
     Dates: start: 20180412, end: 20180522
  11. OMEPRAZOLE. [Concomitant]
     Active Substance: OMEPRAZOLE
     Dosage: UNK ()
     Route: 063
     Dates: start: 20180412, end: 20180522
  12. NOVORAPID [Suspect]
     Active Substance: INSULIN ASPART
     Indication: TYPE 1 DIABETES MELLITUS
     Dosage: 1.0 UNK ()
     Route: 064
     Dates: start: 201709, end: 20180412
  13. DEXAMETHASONE. [Concomitant]
     Active Substance: DEXAMETHASONE
     Indication: PRE-ECLAMPSIA
     Dosage: UNK ()
     Route: 064
     Dates: start: 20180411, end: 20180412
  14. ASPIRIN                            /00002701/ [Concomitant]
     Active Substance: ASPIRIN
     Dosage: UNK ()
     Route: 063
     Dates: start: 20180412, end: 20180522
  15. FOLIC ACID. [Concomitant]
     Active Substance: FOLIC ACID
     Dosage: UNK ()
     Route: 063
     Dates: start: 20180412, end: 20180522
  16. OMEPRAZOLE. [Concomitant]
     Active Substance: OMEPRAZOLE
     Indication: PROPHYLAXIS
     Dosage: UNK ()
     Route: 064
     Dates: start: 2017, end: 20180412

REACTIONS (3)
  - Exposure via breast milk [Recovered/Resolved]
  - Foetal exposure during pregnancy [Recovered/Resolved]
  - Premature baby [Recovered/Resolved]

NARRATIVE: CASE EVENT DATE: 201709
